FAERS Safety Report 8113829-3 (Version None)
Quarter: 2012Q1

REPORT INFORMATION
  Report Type: 
  Country: None (occurrence: None)
  Receive Date: 20120203
  Receipt Date: 20120128
  Transmission Date: 20120608
  Serious: Yes (Other)
  Sender: FDA-Public Use
  Company Number: PHHY2012IT008007

PATIENT
  Age: 87 Year
  Sex: Male

DRUGS (7)
  1. FLUVASTATIN SODIUM [Suspect]
     Dosage: UNK
  2. FLUTICASONE PROPIONATE [Concomitant]
  3. FUROSEMIDE [Concomitant]
     Dosage: UNK
  4. METFORMIN HCL [Concomitant]
  5. SALMETEROL [Concomitant]
  6. ALLOPURINOL [Concomitant]
     Dosage: UNK
  7. ISOSORBIDE MONONITRATE [Concomitant]

REACTIONS (1)
  - BREAST DISORDER MALE [None]
